FAERS Safety Report 13306674 (Version 1)
Quarter: 2017Q1

REPORT INFORMATION
  Report Type: Spontaneous
  Country: US (occurrence: US)
  Receive Date: 20170308
  Receipt Date: 20170308
  Transmission Date: 20170428
  Serious: No
  Sender: FDA-Public Use
  Company Number: US-AKORN PHARMACEUTICALS-2016AKN00184

PATIENT
  Sex: Female

DRUGS (19)
  1. LOMOTIL [Concomitant]
     Active Substance: ATROPINE SULFATE\DIPHENOXYLATE HYDROCHLORIDE
  2. CYMBALTA [Concomitant]
     Active Substance: DULOXETINE HYDROCHLORIDE
  3. METOPROLOL. [Concomitant]
     Active Substance: METOPROLOL
  4. TAGAMET [Concomitant]
     Active Substance: CIMETIDINE
  5. GEODON [Concomitant]
     Active Substance: ZIPRASIDONE HYDROCHLORIDE\ZIPRASIDONE MESYLATE
  6. BACLOFEN. [Concomitant]
     Active Substance: BACLOFEN
  7. MYORISAN [Suspect]
     Active Substance: ISOTRETINOIN
     Indication: ACNE
  8. LEXAPRO [Concomitant]
     Active Substance: ESCITALOPRAM OXALATE
  9. COUMADIN [Concomitant]
     Active Substance: WARFARIN SODIUM
  10. MYORISAN [Suspect]
     Active Substance: ISOTRETINOIN
     Indication: HIDRADENITIS
     Dosage: 40 MG, 1X/DAY
     Route: 048
     Dates: start: 20160121, end: 2016
  11. PHENTERMINE. [Concomitant]
     Active Substance: PHENTERMINE
  12. FAMOTIDINE. [Concomitant]
     Active Substance: FAMOTIDINE
  13. ^NG^ [Concomitant]
  14. ELAVIL [Concomitant]
     Active Substance: AMITRIPTYLINE HYDROCHLORIDE
  15. MIRTAZAPINE. [Concomitant]
     Active Substance: MIRTAZAPINE
  16. PERCOCET [Concomitant]
     Active Substance: ACETAMINOPHEN\OXYCODONE HYDROCHLORIDE
  17. CELEBREX [Concomitant]
     Active Substance: CELECOXIB
  18. FISH OIL [Concomitant]
     Active Substance: FISH OIL
  19. CYCLOBENZAPRINE [Concomitant]
     Active Substance: CYCLOBENZAPRINE

REACTIONS (2)
  - Sciatica [Unknown]
  - Muscle spasms [Unknown]

NARRATIVE: CASE EVENT DATE: 2016
